FAERS Safety Report 6635060-0 (Version None)
Quarter: 2010Q1

REPORT INFORMATION
  Report Type: 
  Country: None (occurrence: None)
  Receive Date: 20100312
  Receipt Date: 20100312
  Transmission Date: 20100710
  Serious: Yes (Hospitalization)
  Sender: FDA-Public Use
  Company Number: None

PATIENT
  Age: 64 Year
  Sex: Female
  Weight: 58.9676 kg

DRUGS (2)
  1. FOSAMAX [Suspect]
     Indication: OSTEOPOROSIS
     Dosage: 10MG DAILY PO
     Route: 048
     Dates: start: 19981001, end: 20020101
  2. FOSAMAX [Suspect]
     Indication: OSTEOPOROSIS
     Dosage: 70MG WEEKLY PO
     Route: 048
     Dates: start: 19981001, end: 20020101

REACTIONS (5)
  - ASTHENIA [None]
  - FEMUR FRACTURE [None]
  - JOINT RANGE OF MOTION DECREASED [None]
  - PAIN [None]
  - STRESS FRACTURE [None]
